FAERS Safety Report 9155390 (Version 1)
Quarter: 2013Q1

REPORT INFORMATION
  Report Type: Spontaneous
  Country: JP (occurrence: JP)
  Receive Date: 20130311
  Receipt Date: 20130311
  Transmission Date: 20140127
  Serious: Yes (Other)
  Sender: FDA-Public Use
  Company Number: JP-PFIZER INC-2013076316

PATIENT
  Age: 71 Year
  Sex: Male

DRUGS (4)
  1. PACLITAXEL [Suspect]
     Indication: NON-SMALL CELL LUNG CANCER STAGE IV
     Dosage: UNK
  2. CARBOPLATIN [Suspect]
     Indication: NON-SMALL CELL LUNG CANCER STAGE IV
     Dosage: UNK
  3. MORPHINE SULFATE [Concomitant]
     Indication: PAIN
     Dosage: UNK
  4. ZOLEDRONIC ACID [Concomitant]
     Indication: METASTASES TO BONE

REACTIONS (4)
  - Portal venous gas [Recovered/Resolved]
  - Nausea [Unknown]
  - Decreased appetite [Unknown]
  - General physical health deterioration [Unknown]
